FAERS Safety Report 7052408-6 (Version None)
Quarter: 2010Q4

REPORT INFORMATION
  Report Type: 
  Country: None (occurrence: None)
  Receive Date: 20101019
  Receipt Date: 20100921
  Transmission Date: 20110411
  Serious: Yes (Other)
  Sender: FDA-Public Use
  Company Number: PHHY2010BR66345

PATIENT
  Age: 55 Year
  Sex: Female
  Weight: 75 kg

DRUGS (14)
  1. DIOVAN AMLO FIX [Suspect]
     Dosage: 350/5 MG, ONCE A DAY
     Dates: end: 20100629
  2. METFORMIN HCL [Concomitant]
     Dosage: 1000 MG, QD
  3. TICLOPIDINE HCL [Concomitant]
     Dosage: 250MG, 12/12 HRS.
  4. SPIRONOLACTONE [Concomitant]
     Dosage: 100 MG, QD
  5. CLONIDINE [Concomitant]
     Dosage: 0.2 MG, BID
  6. ATENOLOL [Concomitant]
     Dosage: 50 MG, BID
  7. LOVAZA [Concomitant]
     Dosage: 1000MG, 06 CAPSULES/DAY
  8. SITAGLIPTIN [Concomitant]
     Dosage: 100 MG PER DAY
  9. DEFLAZACORT [Concomitant]
     Dosage: 6 MG, QD
  10. CIPROFIBRATE [Concomitant]
     Dosage: 100 MG, UNK
  11. INSULIN [Concomitant]
     Dosage: NPH 40 IU, UNK
  12. INSULIN [Concomitant]
     Dosage: 30 IU, UNK
  13. ATENSINE [Concomitant]
  14. FUROSEMIDE [Concomitant]
     Dosage: 40 MG, UNK

REACTIONS (6)
  - CARDIAC HYPERTROPHY [None]
  - CHEST PAIN [None]
  - DIASTOLIC DYSFUNCTION [None]
  - DYSPNOEA [None]
  - PROTEINURIA [None]
  - WEIGHT DECREASED [None]
